FAERS Safety Report 8399049-6 (Version None)
Quarter: 2012Q2

REPORT INFORMATION
  Report Type: 
  Country: None (occurrence: None)
  Receive Date: 20120323
  Receipt Date: 20110303
  Transmission Date: 20120825
  Serious: Yes (Hospitalization)
  Sender: FDA-Public Use
  Company Number: 163-21880-11010681

PATIENT
  Age: 82 Year
  Sex: Male

DRUGS (7)
  1. NIFEDIPINE [Concomitant]
  2. ISOSORBIDE (ISOSORBIDE) [Concomitant]
  3. ZOMETA [Concomitant]
  4. REVLIMID [Suspect]
     Indication: MULTIPLE MYELOMA
     Dosage: 10 MG, DAILY X 21 DAYS, OFF 7 DAYS, PO
     Route: 048
     Dates: start: 20101215
  5. PRILOSEC [Concomitant]
  6. ASPIRIN [Concomitant]
  7. LIPITOR [Concomitant]

REACTIONS (3)
  - BACK PAIN [None]
  - IMMOBILE [None]
  - LETHARGY [None]
